FAERS Safety Report 16361032 (Version 1)
Quarter: 2019Q2

REPORT INFORMATION
  Report Type: Spontaneous
  Country: BR (occurrence: BR)
  Receive Date: 20190528
  Receipt Date: 20190528
  Transmission Date: 20190711
  Serious: Yes (Other)
  Sender: FDA-Public Use
  Company Number: BR-ABBVIE-19P-020-2798963-00

PATIENT
  Age: 67 Year
  Sex: Female
  Weight: 90 kg

DRUGS (12)
  1. DIVALCON ER [Suspect]
     Active Substance: DIVALPROEX SODIUM
     Indication: ILL-DEFINED DISORDER
     Dosage: UNIT DOSE: 1 TABLET, FREQUENCY: ONE IN THE MORNING AND THE OTHER AT NIGHT
     Route: 048
     Dates: start: 20190319
  2. CALCIUM [Concomitant]
     Active Substance: CALCIUM
     Indication: BONE DECALCIFICATION
     Dosage: 1 TABLET, TWICE A DAY, NIGHT/MORNING
     Route: 048
  3. DIOSMIN [Concomitant]
     Active Substance: DIOSMIN
     Indication: CARDIOVASCULAR DISORDER
     Dosage: 1 TABLET, TWICE A DAY, MORNING/NIGHT
     Route: 048
     Dates: start: 2009
  4. CLONAZEPAM. [Concomitant]
     Active Substance: CLONAZEPAM
     Indication: LOSS OF CONSCIOUSNESS
  5. ATORVASTATIN [Concomitant]
     Active Substance: ATORVASTATIN
     Indication: VENOUS THROMBOSIS
     Dosage: 1 TABLET, ONCE A DAY, AT NIGHT
     Route: 048
     Dates: start: 1999
  6. QUETIAPINE. [Concomitant]
     Active Substance: QUETIAPINE
     Indication: SLEEP DISORDER THERAPY
     Dosage: 1 TABLET, ONCE A DAY, (PHYSICIAN IS ALWAYS CHANGING THE DOSAGE)
     Route: 048
     Dates: start: 2011
  7. ACETYLSALICYLIC ACID [Concomitant]
     Active Substance: ASPIRIN
     Indication: PRODUCT USED FOR UNKNOWN INDICATION
     Route: 048
     Dates: start: 1999
  8. LEVOID [Concomitant]
     Active Substance: LEVOTHYROXINE
     Indication: THYROID DISORDER
     Route: 048
     Dates: start: 2009
  9. DIVALCON ER [Suspect]
     Active Substance: DIVALPROEX SODIUM
     Dosage: START DATE: 20 DAYS AGO
     Route: 065
     Dates: start: 2019
  10. GLICLAZIDE [Concomitant]
     Active Substance: GLICLAZIDE
     Indication: DIABETES MELLITUS
     Route: 048
     Dates: start: 2009
  11. CLONAZEPAM. [Concomitant]
     Active Substance: CLONAZEPAM
     Indication: IRRITABILITY
     Route: 048
     Dates: start: 2009
  12. ATENOLOL. [Concomitant]
     Active Substance: ATENOLOL
     Indication: HYPERTENSION
     Dosage: 1 TABLET, ONCE A DAY, IN THE MORNING
     Route: 048
     Dates: start: 1999

REACTIONS (10)
  - Nervous system disorder [Unknown]
  - Neck injury [Unknown]
  - Body height decreased [Unknown]
  - Head discomfort [Recovered/Resolved]
  - Fall [Recovered/Resolved]
  - Spinal fracture [Unknown]
  - Joint injury [Unknown]
  - Inappropriate schedule of product administration [Unknown]
  - Limb injury [Unknown]
  - Gait disturbance [Recovering/Resolving]

NARRATIVE: CASE EVENT DATE: 20190319
